FAERS Safety Report 8569232 (Version 2)
Quarter: 2013Q2

REPORT INFORMATION
  Report Type: Spontaneous
  Country: US (occurrence: US)
  Receive Date: 20120518
  Receipt Date: 20130502
  Transmission Date: 20140414
  Serious: Yes (Other)
  Sender: FDA-Public Use
  Company Number: US-ALEXION-A201200405

PATIENT
  Age: 30 Year
  Sex: Female
  Weight: 74.7 kg

DRUGS (9)
  1. SOLIRIS 300MG [Suspect]
     Indication: PAROXYSMAL NOCTURNAL HAEMOGLOBINURIA
     Dosage: UNK
     Route: 042
     Dates: start: 201001
  2. SOLIRIS 300MG [Suspect]
     Dosage: 900 MG, Q2W
     Route: 042
     Dates: start: 20100216, end: 201106
  3. SOLIRIS 300MG [Suspect]
     Dosage: 1200 MG, Q12DAYS
     Dates: start: 201107
  4. SOLIRIS 300MG [Suspect]
     Dosage: 1200 MG, Q10DAYS
     Route: 042
     Dates: start: 20111208
  5. SOLIRIS 300MG [Suspect]
     Dosage: 900 MG, Q10DAYS
     Route: 042
     Dates: start: 20120309
  6. SOLIRIS 300MG [Suspect]
     Dosage: 900 MG, Q12DAYS
     Route: 042
     Dates: start: 20120405
  7. FOLIC ACID [Concomitant]
     Dosage: 2 MG, QD
     Route: 048
  8. EMLA [Concomitant]
     Dosage: 2.5%-2.5%, PRN, PRIOR TO PROCEDURE
     Route: 061
  9. NORMAL SALINE [Concomitant]
     Dosage: 250 ML, POST SOLIRIS
     Route: 042

REACTIONS (8)
  - Anaemia [Recovered/Resolved]
  - Paroxysmal nocturnal haemoglobinuria [Recovering/Resolving]
  - Condition aggravated [Recovering/Resolving]
  - Exposure during pregnancy [Recovered/Resolved]
  - Weight increased [Recovering/Resolving]
  - Fatigue [Recovering/Resolving]
  - Arthralgia [Recovered/Resolved]
  - Haemolysis [Recovered/Resolved]
